FAERS Safety Report 10067979 (Version 3)
Quarter: 2014Q2

REPORT INFORMATION
  Report Type: Spontaneous
  Country: US (occurrence: US)
  Receive Date: 20140409
  Receipt Date: 20140619
  Transmission Date: 20141212
  Serious: Yes (Death, Hospitalization, Other)
  Sender: FDA-Public Use
  Company Number: US-PFIZER INC-2014096803

PATIENT
  Age: 71 Year
  Sex: Female

DRUGS (1)
  1. REVATIO [Suspect]
     Dosage: UNK

REACTIONS (9)
  - Pulmonary arterial hypertension [Fatal]
  - Renal failure chronic [Unknown]
  - Respiratory failure [Unknown]
  - Acute pulmonary oedema [Unknown]
  - Hypercalcaemia [Unknown]
  - Monoclonal gammopathy [Unknown]
  - Lung disorder [Unknown]
  - Peripheral vascular disorder [Unknown]
  - Gout [Unknown]
